FAERS Safety Report 5931837-5 (Version None)
Quarter: 2008Q4

REPORT INFORMATION
  Report Type: 
  Country: None (occurrence: None)
  Receive Date: 20081027
  Receipt Date: 20081016
  Transmission Date: 20090506
  Serious: Yes (Other)
  Sender: FDA-Public Use
  Company Number: JP-PFIZER INC-2008073771

PATIENT
  Sex: Female
  Weight: 37 kg

DRUGS (13)
  1. GABAPEN [Suspect]
     Indication: CANCER PAIN
     Route: 048
     Dates: start: 20080717, end: 20080718
  2. FENTANYL [Suspect]
     Indication: CANCER PAIN
     Dosage: DAILY DOSE:2.1MG
     Route: 062
     Dates: start: 20080717, end: 20080718
  3. FENTANYL [Suspect]
     Dosage: DAILY DOSE:5MG
     Route: 062
     Dates: start: 20080623
  4. DEPAS [Concomitant]
     Route: 048
     Dates: end: 20080718
  5. NAIXAN [Concomitant]
     Route: 048
  6. FAMOTIDINE [Concomitant]
     Route: 048
  7. AMLODIN [Concomitant]
     Route: 048
  8. BROTIZOLAM [Concomitant]
     Route: 048
     Dates: end: 20080718
  9. PREDONINE [Concomitant]
     Route: 048
  10. MAGNESIUM OXIDE [Concomitant]
     Route: 048
  11. BIOFERMIN [Concomitant]
     Route: 048
  12. ALL OTHER THERAPEUTIC PRODUCTS [Concomitant]
     Dates: start: 20080612, end: 20080709
  13. OXINORM [Concomitant]
     Route: 048
     Dates: start: 20080627

REACTIONS (6)
  - DIZZINESS [None]
  - HEADACHE [None]
  - MUSCULOSKELETAL PAIN [None]
  - NAUSEA [None]
  - RESPIRATORY DEPRESSION [None]
  - SOMNOLENCE [None]
